FAERS Safety Report 10024061 (Version 1)
Quarter: 2014Q1

REPORT INFORMATION
  Report Type: Spontaneous
  Country: US (occurrence: None)
  Receive Date: 20140318
  Receipt Date: 20140318
  Transmission Date: 20141002
  Serious: Yes (Other)
  Sender: FDA-Public Use
  Company Number: 2014-00042

PATIENT
  Age: 21 Year
  Sex: Male
  Weight: 131.54 kg

DRUGS (1)
  1. ZICAM EXTREME CONGESTION RELIEF [Suspect]
     Indication: NASOPHARYNGITIS
     Dosage: NASAL SPRAY EACH NOSTRIL ONCE
     Route: 045

REACTIONS (1)
  - Anosmia [None]
